FAERS Safety Report 8514916-8 (Version None)
Quarter: 2012Q3

REPORT INFORMATION
  Report Type: 
  Country: None (occurrence: None)
  Receive Date: 20120717
  Receipt Date: 20120711
  Transmission Date: 20120928
  Serious: Yes (Other)
  Sender: FDA-Public Use
  Company Number: US-CELGENEUS-163-21880-12071221

PATIENT
  Sex: Male

DRUGS (6)
  1. CRESTOR [Concomitant]
     Dosage: 20 MILLIGRAM
     Route: 048
  2. FISH OIL [Concomitant]
     Route: 048
  3. VITAMIN D [Concomitant]
     Dosage: 1000 UNIT
     Route: 048
  4. REVLIMID [Suspect]
     Indication: MULTIPLE MYELOMA
     Dosage: 25 MILLIGRAM
     Route: 048
     Dates: start: 20120511
  5. BENICAR [Concomitant]
     Dosage: 20 MILLIGRAM
     Route: 048
  6. ASPIRIN [Concomitant]
     Dosage: 325 MILLIGRAM
     Route: 048

REACTIONS (3)
  - ABDOMINAL PAIN UPPER [None]
  - SICK SINUS SYNDROME [None]
  - MUSCLE SPASMS [None]
